FAERS Safety Report 19126149 (Version 1)
Quarter: 2021Q2

REPORT INFORMATION
  Report Type: Spontaneous
  Country: US (occurrence: US)
  Receive Date: 20210412
  Receipt Date: 20210412
  Transmission Date: 20210717
  Serious: No
  Sender: FDA-Public Use
  Company Number: US-SA-2021SA117727

PATIENT
  Age: 53 Year
  Sex: Female

DRUGS (1)
  1. XYZAL [Suspect]
     Active Substance: LEVOCETIRIZINE DIHYDROCHLORIDE
     Dosage: DRUG STRUCTURE DOSAGE : 1 TABLET DRUG INTERVAL DOSAGE : DAILY
     Route: 065
     Dates: start: 20210225

REACTIONS (2)
  - Rash [Unknown]
  - Urticaria [Unknown]
